FAERS Safety Report 22015459 (Version 2)
Quarter: 2023Q1

REPORT INFORMATION
  Report Type: Spontaneous
  Country: US (occurrence: US)
  Receive Date: 20230221
  Receipt Date: 20230315
  Transmission Date: 20230417
  Serious: Yes (Other)
  Sender: FDA-Public Use
  Company Number: US-BAYER-2023A018902

PATIENT
  Age: 90 Year
  Sex: Female

DRUGS (1)
  1. GENUINE BAYER ASPIRIN [Suspect]
     Active Substance: ASPIRIN
     Indication: Thrombosis
     Dosage: UNK

REACTIONS (2)
  - Pulmonary embolism [None]
  - Off label use [None]
